FAERS Safety Report 24211832 (Version 3)
Quarter: 2024Q3

REPORT INFORMATION
  Report Type: Report from Study
  Country: DE (occurrence: DE)
  Receive Date: 20240814
  Receipt Date: 20240905
  Transmission Date: 20241017
  Serious: Yes (Congenital Anomaly, Other)
  Sender: TEVA
  Company Number: DE-TEVA-VS-3231527

PATIENT

DRUGS (2)
  1. LACOSAMIDE [Suspect]
     Active Substance: LACOSAMIDE
     Indication: Epilepsy
     Route: 064
  2. LAMOTRIGINE [Suspect]
     Active Substance: LAMOTRIGINE
     Indication: Epilepsy
     Route: 064

REACTIONS (3)
  - Coarctation of the aorta [Unknown]
  - Atrial septal defect [Unknown]
  - Foetal exposure during pregnancy [Unknown]
